FAERS Safety Report 23352854 (Version 1)
Quarter: 2023Q4

REPORT INFORMATION
  Report Type: Spontaneous
  Country: NL (occurrence: NL)
  Receive Date: 20231230
  Receipt Date: 20231230
  Transmission Date: 20240109
  Serious: Yes (Other)
  Sender: FDA-Public Use
  Company Number: NL-LRB-00933844

PATIENT
  Age: 73 Year
  Sex: Male
  Weight: 89 kg

DRUGS (1)
  1. METOPROLOL [Suspect]
     Active Substance: METOPROLOL
     Indication: Hypertension
     Dosage: UNK
     Route: 065
     Dates: start: 20200103, end: 20211001

REACTIONS (2)
  - Dyspnoea exertional [Recovered/Resolved]
  - Silent myocardial infarction [Recovered/Resolved]

NARRATIVE: CASE EVENT DATE: 20220901
